FAERS Safety Report 9484106 (Version 1)
Quarter: 2013Q3

REPORT INFORMATION
  Report Type: Spontaneous
  Country: US (occurrence: US)
  Receive Date: 20130828
  Receipt Date: 20130828
  Transmission Date: 20140515
  Serious: Yes (Other)
  Sender: FDA-Public Use
  Company Number: US-AMGEN-KDL377699

PATIENT
  Age: 45 Year
  Sex: Female
  Weight: 76 kg

DRUGS (10)
  1. ENBREL [Suspect]
     Indication: PRODUCT USED FOR UNKNOWN INDICATION
     Dosage: 50 MG, QWK
     Route: 058
  2. VENLAFAXINE HCL [Concomitant]
     Dosage: 75 MG, UNK
  3. AMLODIPINE [Concomitant]
     Dosage: 10 MG, UNK
  4. ENALAPRIL [Concomitant]
     Dosage: 20 MG, UNK
  5. FOLIC ACID [Concomitant]
     Dosage: 1 MG, UNK
  6. INSULIN ASPART [Concomitant]
     Dosage: 100 ML, UNK
  7. FERROUS SULFATE [Concomitant]
     Dosage: 325 MG, UNK
  8. METOPROLOL [Concomitant]
     Dosage: 100 MG, UNK
  9. MULTIVITAMINS [Concomitant]
     Dosage: UNK UNK, UNK
  10. METHOTREXATE [Concomitant]
     Dosage: 25 MG, UNK

REACTIONS (1)
  - Tongue neoplasm malignant stage unspecified [Unknown]
